FAERS Safety Report 4622359-2 (Version None)
Quarter: 2005Q1

REPORT INFORMATION
  Report Type: 
  Country: None (occurrence: None)
  Receive Date: 20050325
  Receipt Date: 20050325
  Transmission Date: 20050727
  Serious: Yes (Other)
  Sender: FDA-Public Use
  Company Number: None

PATIENT
  Sex: Male
  Weight: 0.0724 kg

DRUGS (3)
  1. FLUOROURACIL [Suspect]
     Dates: start: 20050207
  2. MITOMYCIN-C BULK POWDER [Suspect]
  3. RT [Suspect]

REACTIONS (2)
  - PAIN [None]
  - RADIATION SKIN INJURY [None]
